FAERS Safety Report 20526672 (Version 1)
Quarter: 2022Q1

REPORT INFORMATION
  Report Type: Spontaneous
  Country: US (occurrence: None)
  Receive Date: 20220227
  Receipt Date: 20220227
  Transmission Date: 20220423
  Serious: Yes (Other)
  Sender: FDA-Public Use
  Company Number: None

PATIENT
  Sex: Female

DRUGS (1)
  1. INVEGA [Suspect]
     Active Substance: PALIPERIDONE
     Indication: Mental disorder

REACTIONS (5)
  - Weight increased [None]
  - Tremor [None]
  - Chills [None]
  - Amenorrhoea [None]
  - Sleep deficit [None]

NARRATIVE: CASE EVENT DATE: 20200204
